FAERS Safety Report 9868438 (Version 1)
Quarter: 2014Q1

REPORT INFORMATION
  Report Type: Report from Study
  Country: US (occurrence: US)
  Receive Date: 20140204
  Receipt Date: 20140204
  Transmission Date: 20141002
  Serious: Yes (Hospitalization)
  Sender: FDA-Public Use
  Company Number: US-ACTELION-A-US2014-94299

PATIENT
  Age: 43 Year
  Sex: Female

DRUGS (2)
  1. VELETRI [Suspect]
     Indication: PULMONARY ARTERIAL HYPERTENSION
     Dosage: 9 NG/KG, UNK
     Route: 042
     Dates: start: 20140116
  2. COUMADIN [Concomitant]

REACTIONS (2)
  - Cough [Unknown]
  - Dyspnoea [Unknown]
